FAERS Safety Report 8485783-6 (Version None)
Quarter: 2012Q3

REPORT INFORMATION
  Report Type: 
  Country: None (occurrence: None)
  Receive Date: 20120703
  Receipt Date: 20120622
  Transmission Date: 20120928
  Serious: Yes (Other)
  Sender: FDA-Public Use
  Company Number: JP-VERTEX PHARMACEUTICALS INC.-AE-2012-009475

PATIENT
  Age: 66 Year
  Sex: Male

DRUGS (9)
  1. TELAVIC (TELAPREVIR) [Suspect]
     Route: 048
     Dates: start: 20120530
  2. XYZAL [Concomitant]
     Route: 048
     Dates: start: 20120508, end: 20120528
  3. FLIVASTATIN SODIUM [Concomitant]
     Route: 048
  4. CERNILTON [Concomitant]
  5. SELBEX [Concomitant]
     Route: 048
     Dates: start: 20120508
  6. TELAVIC (TELAPREVIR) [Suspect]
     Indication: HEPATITIS C
     Route: 048
     Dates: start: 20120508, end: 20120529
  7. RIBAVIRIN [Concomitant]
     Indication: HEPATITIS C
     Route: 048
     Dates: start: 20120508
  8. PEGINTERFERON ALFA-2B [Concomitant]
     Indication: HEPATITIS C
     Route: 058
     Dates: start: 20120508
  9. LANSOPRAZOLE [Concomitant]
     Route: 048
     Dates: start: 20120512, end: 20120529

REACTIONS (1)
  - WHITE BLOOD CELL COUNT DECREASED [None]
